FAERS Safety Report 18806521 (Version 1)
Quarter: 2021Q1

REPORT INFORMATION
  Report Type: Spontaneous
  Country: US (occurrence: US)
  Receive Date: 20210128
  Receipt Date: 20210128
  Transmission Date: 20210419
  Serious: Yes (Hospitalization)
  Sender: FDA-Public Use
  Company Number: None

PATIENT
  Age: 78 Year
  Sex: Female
  Weight: 88.1 kg

DRUGS (1)
  1. CASIRIVIMAB/IMDEVIMAB [Suspect]
     Active Substance: CASIRIVIMAB\IMDEVIMAB
     Indication: COVID-19
     Dosage: ?          OTHER FREQUENCY:ONCE;?
     Route: 042
     Dates: start: 20210126, end: 20210126

REACTIONS (9)
  - Tachycardia [None]
  - Hypoxia [None]
  - Blood lactic acid increased [None]
  - Dyspnoea [None]
  - Cough [None]
  - Pyrexia [None]
  - Chills [None]
  - Tachypnoea [None]
  - COVID-19 [None]

NARRATIVE: CASE EVENT DATE: 20210126
